FAERS Safety Report 16132081 (Version 2)
Quarter: 2019Q2

REPORT INFORMATION
  Report Type: Spontaneous
  Country: US (occurrence: US)
  Receive Date: 20190329
  Receipt Date: 20190625
  Transmission Date: 20190711
  Serious: Yes (Other)
  Sender: FDA-Public Use
  Company Number: US-009507513-1903USA010495

PATIENT
  Sex: Female

DRUGS (2)
  1. MENOTROPINS [Suspect]
     Active Substance: MENOTROPINS
  2. FOLLISTIM [Suspect]
     Active Substance: FOLLITROPIN

REACTIONS (1)
  - Ovarian hyperstimulation syndrome [Unknown]
